FAERS Safety Report 14295007 (Version 1)
Quarter: 2017Q4

REPORT INFORMATION
  Report Type: Spontaneous
  Country: US (occurrence: US)
  Receive Date: 20171218
  Receipt Date: 20171218
  Transmission Date: 20180321
  Serious: Yes (Other)
  Sender: FDA-Public Use
  Company Number: US-ABBVIE-17S-163-2196462-00

PATIENT
  Sex: Female

DRUGS (1)
  1. LEVOTHYROXINE. [Suspect]
     Active Substance: LEVOTHYROXINE
     Indication: THYROID DISORDER
     Route: 065
     Dates: start: 20150529

REACTIONS (11)
  - Anxiety [Recovered/Resolved]
  - Drug ineffective [Unknown]
  - Cardiac flutter [Recovered/Resolved]
  - Lip swelling [Recovered/Resolved]
  - Dysphagia [Recovered/Resolved]
  - Appetite disorder [Recovered/Resolved]
  - Irritability [Unknown]
  - Alopecia [Recovered/Resolved]
  - Nausea [Unknown]
  - Nervousness [Recovered/Resolved]
  - Feeling abnormal [Recovered/Resolved]
